FAERS Safety Report 6429742-3 (Version None)
Quarter: 2009Q4

REPORT INFORMATION
  Report Type: 
  Country: None (occurrence: None)
  Receive Date: 20091103
  Receipt Date: 20091019
  Transmission Date: 20100525
  Serious: Yes (Hospitalization)
  Sender: FDA-Public Use
  Company Number: 02100-JPN-07-0060

PATIENT
  Age: 74 Year
  Sex: Male
  Weight: 52 kg

DRUGS (9)
  1. PLETAL [Suspect]
     Indication: CEREBRAL INFARCTION
     Dosage: 81 MG, QD ORAL
     Route: 048
     Dates: start: 20041206, end: 20070109
  2. ALOSENNIN (SENNA FRUIT, SENNA LEAF, RUBIA ROOT TINCTURE), ACHILLEA, TA [Concomitant]
  3. ZONISAMIDE [Concomitant]
  4. PHENOBARBITAL TAB [Concomitant]
  5. PHENYTOIN [Concomitant]
  6. ISODINE GARGLE (POVIDINE IODINE [Concomitant]
  7. NIFLAN (PRANOPROFEN) [Concomitant]
  8. SG (PYRAZOLONE ANTI-PYRETICS, ANALGESICS,ANTI-INFLAMMATORIES COMBINED [Concomitant]
  9. DIOVAN [Concomitant]

REACTIONS (3)
  - ANAEMIA [None]
  - CONDITION AGGRAVATED [None]
  - HAEMORRHOIDS [None]
